FAERS Safety Report 16932071 (Version 2)
Quarter: 2020Q1

REPORT INFORMATION
  Report Type: Spontaneous
  Country: US (occurrence: US)
  Receive Date: 20191017
  Receipt Date: 20200117
  Transmission Date: 20200409
  Serious: No
  Sender: FDA-Public Use
  Company Number: US-CHILTERN-US-2019-000785

PATIENT

DRUGS (6)
  1. ATORVASTATIN [Concomitant]
     Active Substance: ATORVASTATIN
     Indication: BLOOD CHOLESTEROL INCREASED
     Dosage: 1 DF, QD
     Route: 048
     Dates: start: 1999
  2. CALCIUM [Concomitant]
     Active Substance: CALCIUM
     Indication: MINERAL SUPPLEMENTATION
     Dosage: 2 DF AT NIGHT, QD
     Route: 048
     Dates: start: 1999
  3. RHOPRESSA [Suspect]
     Active Substance: NETARSUDIL MESYLATE
     Indication: GLAUCOMA
     Dosage: 1 GTT BOTH THE EYES, QD
     Route: 047
     Dates: start: 20190903, end: 20190904
  4. ASPIRIN                            /00002701/ [Concomitant]
     Active Substance: ASPIRIN
     Indication: CARDIAC DISORDER
     Dosage: 1 DF, QD
     Route: 048
     Dates: start: 1999
  5. LUMIGAN [Concomitant]
     Active Substance: BIMATOPROST
     Indication: GLAUCOMA
     Dosage: 2 GTT BOTH EYES AT NIGHT, QD
     Route: 047
     Dates: start: 2004
  6. VITAMIN B12 [Concomitant]
     Active Substance: CYANOCOBALAMIN
     Dosage: 1 DF, QD
     Route: 048
     Dates: start: 2018

REACTIONS (2)
  - Eye irritation [Recovered/Resolved]
  - Conjunctival hyperaemia [Recovered/Resolved]

NARRATIVE: CASE EVENT DATE: 20190904
